FAERS Safety Report 25440421 (Version 5)
Quarter: 2025Q4

REPORT INFORMATION
  Report Type: Report from Study
  Country: BR (occurrence: BR)
  Receive Date: 20250616
  Receipt Date: 20251121
  Transmission Date: 20260118
  Serious: Yes (Hospitalization, Other)
  Sender: AMGEN
  Company Number: BR-AMGEN-BRASL2024206285

PATIENT
  Age: 59 Year
  Sex: Male

DRUGS (11)
  1. VECTIBIX [Suspect]
     Active Substance: PANITUMUMAB
     Indication: Colorectal cancer metastatic
     Dosage: UNK, EVERY 15 DAYS (PORT-A-CATH)
     Route: 040
     Dates: start: 2022
  2. VECTIBIX [Suspect]
     Active Substance: PANITUMUMAB
     Dosage: UNK, EVERY 20 DAYS
     Route: 040
     Dates: start: 20240619
  3. VECTIBIX [Suspect]
     Active Substance: PANITUMUMAB
     Dosage: UNK  EVERY 15 DAYS (CATHETER)
     Route: 040
  4. GLIFAGE [Concomitant]
     Active Substance: METFORMIN HYDROCHLORIDE
     Indication: Diabetes mellitus
     Dosage: UNK
  5. LOSARTAN [Concomitant]
     Active Substance: LOSARTAN
     Dosage: 50 MILLIGRAM, QD (1 TABLET IN THE MORNING), A 15 MG 1 TABLET IN THE MORNING/ 5 MG, 1 TABLET DAILY
     Route: 065
  6. ATORVASTATIN CALCIUM [Concomitant]
     Active Substance: ATORVASTATIN CALCIUM
     Dosage: 20 MILLIGRAM, QD (1 TABLET DAILY)
     Route: 065
  7. BETAHISTINE [Concomitant]
     Active Substance: BETAHISTINE
     Dosage: 48 MILLIGRAM, QD
     Route: 065
  8. ASPIRIN [Concomitant]
     Active Substance: ASPIRIN
     Dosage: 100 MILLIGRAM, QD (1 TABLET DAILY)
     Route: 065
  9. CLOPIDOGREL BISULFATE [Concomitant]
     Active Substance: CLOPIDOGREL BISULFATE
     Dosage: 75 MILLIGRAM, QD (1 TABLET DAILY)
     Route: 065
  10. BETADINE [Concomitant]
     Active Substance: POVIDONE-IODINE
     Dosage: 48 MILLIGRAM, QD (1 TABLET DAILY)
     Route: 065
  11. Provance [Concomitant]
     Dosage: 15 MILLIGRAM, QHS

REACTIONS (34)
  - Genital abscess [Recovering/Resolving]
  - Peripheral vein occlusion [Recovering/Resolving]
  - Localised infection [Not Recovered/Not Resolved]
  - Gastrointestinal disorder [Not Recovered/Not Resolved]
  - Pneumonia [Recovered/Resolved]
  - Malaise [Recovering/Resolving]
  - Pneumonitis [Recovering/Resolving]
  - Pain [Recovering/Resolving]
  - Fatigue [Recovering/Resolving]
  - Carotid artery occlusion [Recovering/Resolving]
  - Neoplasm [Unknown]
  - Pleural effusion [Recovered/Resolved]
  - Anal incontinence [Not Recovered/Not Resolved]
  - Urinary incontinence [Recovering/Resolving]
  - Impaired quality of life [Recovering/Resolving]
  - Anal sphincter atony [Not Recovered/Not Resolved]
  - Proctalgia [Not Recovered/Not Resolved]
  - Eating disorder symptom [Recovering/Resolving]
  - Anorectal discomfort [Not Recovered/Not Resolved]
  - Sensation of foreign body [Recovering/Resolving]
  - Housebound [Unknown]
  - Insomnia [Recovering/Resolving]
  - Dysphagia [Recovering/Resolving]
  - Dermatitis [Recovering/Resolving]
  - Skin lesion [Recovering/Resolving]
  - Gastrooesophageal reflux disease [Recovering/Resolving]
  - Peripheral swelling [Recovering/Resolving]
  - Off label use [Unknown]
  - Cough [Not Recovered/Not Resolved]
  - Abdominal pain [Recovering/Resolving]
  - Pruritus [Recovering/Resolving]
  - Diarrhoea [Recovering/Resolving]
  - Weight decreased [Not Recovered/Not Resolved]
  - Drug ineffective [Unknown]

NARRATIVE: CASE EVENT DATE: 20240101
